FAERS Safety Report 10029639 (Version 1)
Quarter: 2014Q1

REPORT INFORMATION
  Report Type: Spontaneous
  Country: US (occurrence: None)
  Receive Date: 20140320
  Receipt Date: 20140320
  Transmission Date: 20141002
  Serious: Yes (Hospitalization)
  Sender: FDA-Public Use
  Company Number: None

PATIENT
  Age: 79 Year
  Sex: Male
  Weight: 75.75 kg

DRUGS (5)
  1. DECITABINE [Suspect]
     Indication: ACUTE MYELOID LEUKAEMIA
     Dosage: 20 MG/M2; QD X10;28DAYCYCLE
     Dates: start: 20130518
  2. CARVEDILOL [Concomitant]
  3. FUROSEMIDE [Concomitant]
  4. SIMVASTATIN [Concomitant]
  5. VALACYCLOVIR HCI [Concomitant]

REACTIONS (14)
  - Nausea [None]
  - Vomiting [None]
  - Muscle spasms [None]
  - Abdominal pain [None]
  - Faecal incontinence [None]
  - Rectal haemorrhage [None]
  - Dysuria [None]
  - Abdominal distension [None]
  - Haematuria [None]
  - Gastrointestinal viral infection [None]
  - Diarrhoea [None]
  - Bacteraemia [None]
  - Enterocolitis [None]
  - Gastroenteritis [None]
